FAERS Safety Report 24715673 (Version 1)
Quarter: 2024Q4

REPORT INFORMATION
  Report Type: Spontaneous
  Country: IT (occurrence: IT)
  Receive Date: 20241210
  Receipt Date: 20241210
  Transmission Date: 20250114
  Serious: Yes (Hospitalization)
  Sender: ROCHE
  Company Number: None

PATIENT
  Age: 35 Year
  Sex: Male

DRUGS (2)
  1. OCRELIZUMAB [Suspect]
     Active Substance: OCRELIZUMAB
     Indication: Primary progressive multiple sclerosis
     Dosage: DOSE INIZIALE DI OCRELIZUMAB 600 MG: SOMMINISTRATA IN DUE DIVERSE INFUSIONI DA 300 MG A DISTANZA DI
     Route: 042
     Dates: start: 20240325, end: 20240408
  2. OCRELIZUMAB [Suspect]
     Active Substance: OCRELIZUMAB
     Dosage: DOSE INIZIALE DI OCRELIZUMAB 600 MG: SOMMINISTRATA IN DUE DIVERSE INFUSIONI DA 300 MG A DISTANZA DI
     Route: 042
     Dates: start: 20240325, end: 20240408

REACTIONS (1)
  - COVID-19 pneumonia [Recovered/Resolved]

NARRATIVE: CASE EVENT DATE: 20240707
